FAERS Safety Report 9947056 (Version 1)
Quarter: 2014Q1

REPORT INFORMATION
  Report Type: Report from Study
  Country: US (occurrence: US)
  Receive Date: 20140303
  Receipt Date: 20140303
  Transmission Date: 20141002
  Serious: No
  Sender: FDA-Public Use
  Company Number: US-ABBVIE-13P-163-1065590-00

PATIENT
  Age: 42 Year
  Sex: Male

DRUGS (11)
  1. HUMIRA [Suspect]
     Indication: CROHN^S DISEASE
     Dates: start: 20130123
  2. PENTASA [Concomitant]
     Indication: CROHN^S DISEASE
  3. OTC LOMOTIL [Concomitant]
     Indication: DIARRHOEA
  4. LORAZEPAM [Concomitant]
     Indication: ANXIETY
     Dosage: AS NEEDED
  5. CITALOPRAM [Concomitant]
     Indication: DEPRESSION
  6. STRATTERA [Concomitant]
     Indication: ANXIETY
     Dosage: 80MG DAILY
  7. TYLENOL PM [Concomitant]
     Indication: PRODUCT USED FOR UNKNOWN INDICATION
  8. VITAMIN C [Concomitant]
     Indication: VITAMIN SUPPLEMENTATION
  9. FERROUS SULFATE [Concomitant]
     Indication: PRODUCT USED FOR UNKNOWN INDICATION
     Dosage: 3-4 TIMES DAILY
  10. ECHINACEA [Concomitant]
     Indication: PRODUCT USED FOR UNKNOWN INDICATION
  11. DIPHEN-ATROP [Concomitant]
     Indication: DIARRHOEA
     Dosage: 1-3 AS NEEDED

REACTIONS (2)
  - Nasopharyngitis [Recovering/Resolving]
  - Injection site pain [Recovering/Resolving]
